FAERS Safety Report 9727790 (Version 2)
Quarter: 2013Q4

REPORT INFORMATION
  Report Type: Spontaneous
  Country: CA (occurrence: CA)
  Receive Date: 20131204
  Receipt Date: 20131219
  Transmission Date: 20140711
  Serious: Yes (Disabling, Other)
  Sender: FDA-Public Use
  Company Number: CA-ROCHE-1312547

PATIENT
  Sex: 0

DRUGS (2)
  1. XOLAIR [Suspect]
     Indication: ASTHMA
     Route: 058
     Dates: start: 2006
  2. ADVAIR DISKUS [Concomitant]

REACTIONS (1)
  - Neuralgia [Not Recovered/Not Resolved]
